FAERS Safety Report 12693471 (Version 1)
Quarter: 2016Q3

REPORT INFORMATION
  Report Type: Spontaneous
  Country: US (occurrence: None)
  Receive Date: 20160826
  Receipt Date: 20160826
  Transmission Date: 20161109
  Serious: Yes (Hospitalization)
  Sender: FDA-Public Use
  Company Number: None

PATIENT
  Age: 5 Year
  Sex: Male
  Weight: 23.5 kg

DRUGS (6)
  1. DEXEMATHASONE [Suspect]
     Active Substance: DEXAMETHASONE
     Dates: end: 20160416
  2. VINCRISTINE SULFATE. [Suspect]
     Active Substance: VINCRISTINE SULFATE
     Dates: end: 20160413
  3. DAUNORUBICIN [Suspect]
     Active Substance: DAUNORUBICIN
     Dates: end: 20160413
  4. CYTARABINE. [Suspect]
     Active Substance: CYTARABINE
     Dates: end: 20160406
  5. METHOTREXATE. [Suspect]
     Active Substance: METHOTREXATE
     Dates: end: 20160413
  6. ONCASPAR [Suspect]
     Active Substance: PEGASPARGASE
     Dates: end: 20160409

REACTIONS (8)
  - Constipation [None]
  - Cellulitis [None]
  - Skin exfoliation [None]
  - Febrile neutropenia [None]
  - Perirectal abscess [None]
  - Haematochezia [None]
  - Haematoma [None]
  - Fistula [None]

NARRATIVE: CASE EVENT DATE: 20160417
